FAERS Safety Report 18269107 (Version 4)
Quarter: 2022Q2

REPORT INFORMATION
  Report Type: Report from Study
  Country: US (occurrence: US)
  Receive Date: 20200915
  Receipt Date: 20220504
  Transmission Date: 20220721
  Serious: No
  Sender: FDA-Public Use
  Company Number: NVSC2020US251815

PATIENT
  Sex: Female

DRUGS (1)
  1. MAYZENT [Suspect]
     Active Substance: SIPONIMOD
     Indication: Multiple sclerosis
     Dosage: 2 MG, QD
     Route: 048
     Dates: start: 20200911

REACTIONS (5)
  - Feeling hot [Recovered/Resolved]
  - Paraesthesia [Recovering/Resolving]
  - Balance disorder [Unknown]
  - Melanocytic naevus [Unknown]
  - Psoriasis [Unknown]
